FAERS Safety Report 16142685 (Version 1)
Quarter: 2019Q2

REPORT INFORMATION
  Report Type: Spontaneous
  Country: FR (occurrence: FR)
  Receive Date: 20190401
  Receipt Date: 20190401
  Transmission Date: 20190711
  Serious: Yes (Other)
  Sender: FDA-Public Use
  Company Number: FR-BRISTOL-MYERS SQUIBB COMPANY-BMS-2019-029661

PATIENT
  Age: 66 Year
  Sex: Male
  Weight: 73 kg

DRUGS (1)
  1. OPDIVO [Suspect]
     Active Substance: NIVOLUMAB
     Indication: BRONCHIAL CARCINOMA
     Route: 041
     Dates: start: 20180322, end: 20181026

REACTIONS (1)
  - Lung disorder [Recovering/Resolving]

NARRATIVE: CASE EVENT DATE: 20180716
